FAERS Safety Report 20901586 (Version 3)
Quarter: 2022Q3

REPORT INFORMATION
  Report Type: Spontaneous
  Country: US (occurrence: US)
  Receive Date: 20220601
  Receipt Date: 20220719
  Transmission Date: 20221027
  Serious: No
  Sender: FDA-Public Use
  Company Number: US-PFIZER INC-202200781673

PATIENT
  Age: 59 Year
  Sex: Male
  Weight: 104.33 kg

DRUGS (2)
  1. PAXLOVID [Suspect]
     Active Substance: NIRMATRELVIR\RITONAVIR
     Indication: COVID-19 treatment
     Dosage: [PF-07321332 300 MG]/[RITONAVIR 100 MG]; 2X/DAY 3 TABLETS AT MORNING AND 3 IN NIGHT
     Dates: start: 20220527
  2. OLMESARTAN [Concomitant]
     Active Substance: OLMESARTAN
     Dosage: 5 MG, 1X/DAY

REACTIONS (4)
  - Dysgeusia [Not Recovered/Not Resolved]
  - Taste disorder [Not Recovered/Not Resolved]
  - Aptyalism [Not Recovered/Not Resolved]
  - Feeling abnormal [Not Recovered/Not Resolved]

NARRATIVE: CASE EVENT DATE: 20220527
